FAERS Safety Report 5813326-1 (Version None)
Quarter: 2008Q3

REPORT INFORMATION
  Report Type: 
  Country: None (occurrence: None)
  Receive Date: 20080717
  Receipt Date: 20080706
  Transmission Date: 20090109
  Serious: Yes (Hospitalization)
  Sender: FDA-Public Use
  Company Number: JP-BRISTOL-MYERS SQUIBB COMPANY-14264022

PATIENT
  Age: 5 Year
  Sex: Female

DRUGS (8)
  1. ENDOXAN [Suspect]
     Indication: ACUTE LYMPHOCYTIC LEUKAEMIA
     Route: 042
     Dates: start: 20080527, end: 20080619
  2. ONCOVIN [Suspect]
     Indication: ACUTE LYMPHOCYTIC LEUKAEMIA
     Route: 042
     Dates: start: 20080521, end: 20080525
  3. PREDONINE [Concomitant]
  4. BAKTAR [Concomitant]
  5. PRAVASTATIN SODIUM [Concomitant]
  6. FLUCONAZOLE [Concomitant]
  7. PANTHENOL [Concomitant]
  8. GRANISETRON HCL [Concomitant]

REACTIONS (4)
  - ALTERED STATE OF CONSCIOUSNESS [None]
  - BINOCULAR EYE MOVEMENT DISORDER [None]
  - INAPPROPRIATE ANTIDIURETIC HORMONE SECRETION [None]
  - SPEECH DISORDER [None]
